FAERS Safety Report 18931497 (Version 1)
Quarter: 2021Q1

REPORT INFORMATION
  Report Type: Spontaneous
  Country: GB (occurrence: GB)
  Receive Date: 20210224
  Receipt Date: 20210224
  Transmission Date: 20210420
  Serious: Yes (Other)
  Sender: FDA-Public Use
  Company Number: GB-BAUSCH-BL-2021-005500

PATIENT
  Sex: Male

DRUGS (2)
  1. DEXAMETHASONE. [Suspect]
     Active Substance: DEXAMETHASONE
     Indication: NASAL POLYPS
     Dosage: DOSE EQUIVALENT TO PREDNISOLONE 30 MG/D FOR 12 D
     Route: 048
     Dates: start: 2016
  2. BUDESONIDE, FORMOTEROL [Concomitant]
     Indication: ASTHMA
     Dosage: 200/6 UG, TWO PUFFS TWICE A DAY

REACTIONS (2)
  - Chorioretinopathy [Recovered/Resolved]
  - Blindness [Recovered/Resolved]
